FAERS Safety Report 21482958 (Version 3)
Quarter: 2022Q4

REPORT INFORMATION
  Report Type: Spontaneous
  Country: US (occurrence: US)
  Receive Date: 20221020
  Receipt Date: 20221101
  Transmission Date: 20230113
  Serious: Yes (Other)
  Sender: FDA-Public Use
  Company Number: US-SANOFI-01324795

PATIENT
  Age: 70 Year
  Sex: Male

DRUGS (1)
  1. DUPIXENT [Suspect]
     Active Substance: DUPILUMAB
     Indication: Eczema
     Dosage: UNK UNK, 1X
     Dates: start: 20221009, end: 20221009

REACTIONS (4)
  - Lip neoplasm malignant stage unspecified [Unknown]
  - Headache [Unknown]
  - Feeling hot [Unknown]
  - Eczema [Unknown]

NARRATIVE: CASE EVENT DATE: 20221001
